FAERS Safety Report 7686053-6 (Version None)
Quarter: 2011Q3

REPORT INFORMATION
  Report Type: 
  Country: None (occurrence: None)
  Receive Date: 20110816
  Receipt Date: 20110810
  Transmission Date: 20111222
  Serious: No
  Sender: FDA-Public Use
  Company Number: US-PFIZER INC-2011184916

PATIENT
  Sex: Male
  Weight: 79.365 kg

DRUGS (4)
  1. VIAGRA [Suspect]
     Indication: ERECTILE DYSFUNCTION
     Dosage: UNK
     Route: 048
  2. VIAGRA [Suspect]
     Dosage: 100 MG, AS NEEDED
  3. METFORMIN [Concomitant]
     Indication: DIABETES MELLITUS
     Dosage: 500 MG, DAILY
  4. VIAGRA [Suspect]
     Dosage: HALF OF 100 MG TABLET AS NEEDED
     Route: 048
     Dates: end: 20110101

REACTIONS (1)
  - DRUG INEFFECTIVE [None]
